FAERS Safety Report 12871584 (Version 2)
Quarter: 2016Q4

REPORT INFORMATION
  Report Type: Spontaneous
  Country: US (occurrence: US)
  Receive Date: 20161020
  Receipt Date: 20161101
  Transmission Date: 20170207
  Serious: No
  Sender: FDA-Public Use
  Company Number: US-ASTRAZENECA-2016SF07718

PATIENT
  Age: 21710 Day
  Sex: Female
  Weight: 88.5 kg

DRUGS (6)
  1. MOVANTIK [Suspect]
     Active Substance: NALOXEGOL OXALATE
     Indication: CONSTIPATION
     Route: 048
     Dates: start: 20161007
  2. OPANA [Concomitant]
     Active Substance: OXYMORPHONE HYDROCHLORIDE
     Indication: PAIN
  3. LAMOTRIGINE. [Concomitant]
     Active Substance: LAMOTRIGINE
     Indication: ANXIETY
  4. XANAX [Concomitant]
     Active Substance: ALPRAZOLAM
     Indication: ANXIETY
  5. MOVANTIK [Suspect]
     Active Substance: NALOXEGOL OXALATE
     Indication: CONSTIPATION
     Dosage: CUTTING THE TABLET IN HALF AND TAKING 12.5MG BY MOUTH DAILY
     Route: 048
     Dates: start: 20161003
  6. ABILIFY [Concomitant]
     Active Substance: ARIPIPRAZOLE
     Indication: ANXIETY

REACTIONS (4)
  - Back disorder [Unknown]
  - Intentional product misuse [Unknown]
  - Drug effect incomplete [Unknown]
  - Drug administration error [Unknown]

NARRATIVE: CASE EVENT DATE: 20161003
